FAERS Safety Report 19412479 (Version 1)
Quarter: 2021Q2

REPORT INFORMATION
  Report Type: Report from Study
  Country: US (occurrence: US)
  Receive Date: 20210614
  Receipt Date: 20210614
  Transmission Date: 20210717
  Serious: No
  Sender: FDA-Public Use
  Company Number: US-AGIOS-2106US02863

PATIENT

DRUGS (4)
  1. TIBSOVO [Suspect]
     Active Substance: IVOSIDENIB
     Indication: MALIGNANT RESPIRATORY TRACT NEOPLASM
  2. TIBSOVO [Suspect]
     Active Substance: IVOSIDENIB
     Indication: GASTROINTESTINAL CARCINOMA
  3. TIBSOVO [Suspect]
     Active Substance: IVOSIDENIB
     Indication: PROSTATE CANCER
     Dosage: 250 MILLIGRAM, 2 TABLETS (500 MG), QD
     Route: 048
  4. TIBSOVO [Suspect]
     Active Substance: IVOSIDENIB
     Indication: LYMPHOMA

REACTIONS (2)
  - Off label use [Recovered/Resolved]
  - Drug ineffective for unapproved indication [Unknown]
